FAERS Safety Report 8514638-3 (Version None)
Quarter: 2012Q3

REPORT INFORMATION
  Report Type: 
  Country: None (occurrence: None)
  Receive Date: 20120717
  Receipt Date: 20120706
  Transmission Date: 20120928
  Serious: Yes (Hospitalization, Other)
  Sender: FDA-Public Use
  Company Number: JP-VERTEX PHARMACEUTICALS INC.-AE-2012-009475

PATIENT
  Age: 66 Year
  Sex: Male

DRUGS (10)
  1. RIBAVIRIN [Concomitant]
     Indication: HEPATITIS C
     Route: 048
     Dates: start: 20120508
  2. SELBEX [Concomitant]
     Route: 048
     Dates: start: 20120508
  3. LANSOPRAZOLE [Concomitant]
     Route: 048
     Dates: start: 20120512, end: 20120529
  4. RIBAVIRIN [Concomitant]
     Route: 048
     Dates: start: 20120626, end: 20120702
  5. PEGINTERFERON ALFA-2B [Concomitant]
     Indication: HEPATITIS C
     Route: 058
     Dates: start: 20120508, end: 20120626
  6. CERNILTON [Concomitant]
     Route: 048
  7. FLIVASTATIN SODIUM [Concomitant]
     Route: 048
  8. TELAVIC (TELAPREVIR) [Suspect]
     Route: 048
     Dates: start: 20120530, end: 20120625
  9. TELAVIC (TELAPREVIR) [Suspect]
     Indication: HEPATITIS C
     Route: 048
     Dates: start: 20120508, end: 20120529
  10. XYZAL [Concomitant]
     Route: 048
     Dates: start: 20120508, end: 20120528

REACTIONS (2)
  - ANAEMIA [None]
  - WHITE BLOOD CELL COUNT DECREASED [None]
